FAERS Safety Report 17272586 (Version 1)
Quarter: 2020Q1

REPORT INFORMATION
  Report Type: Spontaneous
  Country: US (occurrence: US)
  Receive Date: 20200114
  Receipt Date: 20200114
  Transmission Date: 20200409
  Serious: Yes (Life-Threatening)
  Sender: FDA-Public Use
  Company Number: None

PATIENT
  Age: 11 Month
  Sex: Male
  Weight: 8.3 kg

DRUGS (3)
  1. SILDENAFIL. [Suspect]
     Active Substance: SILDENAFIL
     Indication: PULMONARY ARTERIAL HYPERTENSION
     Route: 051
     Dates: start: 20191212, end: 20200102
  2. RANITIDINE. [Concomitant]
     Active Substance: RANITIDINE
     Dates: start: 20191205, end: 20200104
  3. FLUTICASONE. [Concomitant]
     Active Substance: FLUTICASONE
     Dates: start: 20190523

REACTIONS (5)
  - Hypotension [None]
  - Drug hypersensitivity [None]
  - Vomiting [None]
  - Diarrhoea [None]
  - Anaphylactic reaction [None]

NARRATIVE: CASE EVENT DATE: 20200102
